FAERS Safety Report 9351210 (Version 2)
Quarter: 2013Q2

REPORT INFORMATION
  Report Type: Spontaneous
  Country: BE (occurrence: BE)
  Receive Date: 20130617
  Receipt Date: 20130621
  Transmission Date: 20140414
  Serious: Yes (Death, Hospitalization)
  Sender: FDA-Public Use
  Company Number: BE-PFIZER INC-2013177466

PATIENT
  Age: 73 Year
  Sex: Female
  Weight: 64 kg

DRUGS (12)
  1. VFEND [Suspect]
     Indication: BRONCHOPULMONARY ASPERGILLOSIS
     Dosage: 400 MG, 2X/DAY
     Route: 042
     Dates: start: 20130418, end: 20130418
  2. VFEND [Suspect]
     Dosage: 200 MG, 2X/DAY
     Route: 042
     Dates: start: 20130419, end: 20130421
  3. VFEND [Suspect]
     Indication: BRONCHOPULMONARY ASPERGILLOSIS
     Dosage: 200 MG, 2X/DAY
     Route: 048
     Dates: start: 20130422
  4. DUOVENT [Concomitant]
     Dosage: 4X2 PUFFS/DAY, AS NEEDED
  5. SPIRIVA [Concomitant]
     Dosage: UNK
  6. LANOXIN [Concomitant]
     Dosage: 0.125 MG, 1X/DAY
  7. LIPITOR [Concomitant]
     Dosage: 10 MG, 1X/DAY
  8. MEDROL [Concomitant]
     Dosage: 8 MG, ALTERNATE DAY
  9. PANTOMED [Concomitant]
     Dosage: 40 MG, 1X/DAY
  10. SOTALEX [Concomitant]
     Dosage: 80 MG, 2X/DAY
  11. XARELTO [Concomitant]
     Indication: ATRIAL FIBRILLATION
     Dosage: UNK
     Dates: start: 20130429
  12. RESPIFOR [Concomitant]

REACTIONS (2)
  - Stevens-Johnson syndrome [Fatal]
  - Toxic epidermal necrolysis [Fatal]
